FAERS Safety Report 21757514 (Version 1)
Quarter: 2022Q4

REPORT INFORMATION
  Report Type: Spontaneous
  Country: JP (occurrence: JP)
  Receive Date: 20221221
  Receipt Date: 20221221
  Transmission Date: 20230113
  Serious: Yes (Death, Hospitalization)
  Sender: FDA-Public Use
  Company Number: JP-STRIDES ARCOLAB LIMITED-2022SP017075

PATIENT
  Age: 7 Decade
  Sex: Female

DRUGS (12)
  1. DEXAMETHASONE [Suspect]
     Active Substance: DEXAMETHASONE
     Indication: Plasma cell myeloma
     Dosage: UNK (LENALIDOMIDE PLUS DEXAMETHASONE)
     Route: 065
  2. DEXAMETHASONE [Suspect]
     Active Substance: DEXAMETHASONE
     Dosage: UNK (DARATUMUMAB, BORTEZOMIB PLUS DEXAMETHASONE)
     Route: 065
  3. DEXAMETHASONE [Suspect]
     Active Substance: DEXAMETHASONE
     Dosage: UNK  (ISATUXIMAB, POMALIDOMIDE PLUS DEXAMETHASONE)
     Route: 065
  4. DEXAMETHASONE [Suspect]
     Active Substance: DEXAMETHASONE
     Dosage: UNK, DEVIC CHEMOTHERAPY
     Route: 065
  5. CARBOPLATIN [Suspect]
     Active Substance: CARBOPLATIN
     Indication: Plasma cell myeloma
     Dosage: UNK, DEVIC CHEMOTHERAPY
     Route: 065
     Dates: start: 202111
  6. ETOPOSIDE [Suspect]
     Active Substance: ETOPOSIDE
     Indication: Plasma cell myeloma
     Dosage: UNK, DEVIC CHEMOTHERAPY
     Route: 065
     Dates: start: 202111
  7. LENALIDOMIDE [Suspect]
     Active Substance: LENALIDOMIDE
     Indication: Plasma cell myeloma
     Dosage: UNK, LENALIDOMIDE PLUS DEXAMETHASONE
     Route: 065
  8. DARATUMUMAB [Suspect]
     Active Substance: DARATUMUMAB
     Indication: Plasma cell myeloma
     Dosage: UNK, (DARATUMUMAB, BORTEZOMIB PLUS DEXAMETHASONE)
     Route: 065
  9. BORTEZOMIB [Suspect]
     Active Substance: BORTEZOMIB
     Indication: Plasma cell myeloma
     Dosage: UNK (DARATUMUMAB, BORTEZOMIB PLUS DEXAMETHASONE)
     Route: 065
  10. ISATUXIMAB [Suspect]
     Active Substance: ISATUXIMAB
     Indication: Plasma cell myeloma
     Dosage: UNK (ISATUXIMAB, POMALIDOMIDE PLUS DEXAMETHASONE)
     Route: 065
  11. POMALIDOMIDE [Suspect]
     Active Substance: POMALIDOMIDE
     Indication: Plasma cell myeloma
     Dosage: UNK (ISATUXIMAB, POMALIDOMIDE PLUS DEXAMETHASONE)
     Route: 065
  12. IFOSFAMIDE [Suspect]
     Active Substance: IFOSFAMIDE
     Indication: Plasma cell myeloma
     Dosage: UNK, DEVIC CHEMOTHERAPY
     Route: 065
     Dates: start: 202111

REACTIONS (6)
  - Intravascular haemolysis [Fatal]
  - Clostridial infection [Fatal]
  - Cardiac arrest [Fatal]
  - Haemolytic anaemia [Fatal]
  - Drug ineffective [Fatal]
  - Off label use [Unknown]

NARRATIVE: CASE EVENT DATE: 20210101
